FAERS Safety Report 18239078 (Version 8)
Quarter: 2022Q1

REPORT INFORMATION
  Report Type: Spontaneous
  Country: US (occurrence: US)
  Receive Date: 20200907
  Receipt Date: 20220309
  Transmission Date: 20220423
  Serious: No
  Sender: FDA-Public Use
  Company Number: US-GLAXOSMITHKLINE-US2020AMR176861

PATIENT
  Sex: Female

DRUGS (6)
  1. ZEJULA [Suspect]
     Active Substance: NIRAPARIB
     Indication: Ovarian cancer
     Dosage: 200 MG, QD
     Route: 048
     Dates: start: 20200815
  2. ZEJULA [Suspect]
     Active Substance: NIRAPARIB
     Dosage: 200 MG, QD
     Route: 048
  3. ZEJULA [Suspect]
     Active Substance: NIRAPARIB
     Dosage: 200 MG, QD
     Route: 048
  4. ZEJULA [Suspect]
     Active Substance: NIRAPARIB
     Dosage: 200 MG, QD
     Route: 048
     Dates: start: 2020
  5. ZEJULA [Suspect]
     Active Substance: NIRAPARIB
     Dosage: 200 MG, QD
  6. ZEJULA [Suspect]
     Active Substance: NIRAPARIB
     Dosage: 200 MG, QD
     Route: 048

REACTIONS (18)
  - Diarrhoea [Unknown]
  - Dizziness [Unknown]
  - Abnormal faeces [Unknown]
  - Nausea [Unknown]
  - Muscular weakness [Unknown]
  - Urine odour abnormal [Unknown]
  - Increased tendency to bruise [Unknown]
  - Muscle twitching [Unknown]
  - Muscle spasms [Unknown]
  - Parosmia [Unknown]
  - Pain [Unknown]
  - Oropharyngeal pain [Unknown]
  - Pharyngeal erythema [Unknown]
  - Pharyngeal inflammation [Unknown]
  - Blood pressure fluctuation [Unknown]
  - Hair growth abnormal [Unknown]
  - Alopecia [Unknown]
  - Product dose omission issue [Unknown]
